FAERS Safety Report 7775938-8 (Version None)
Quarter: 2011Q3

REPORT INFORMATION
  Report Type: 
  Country: None (occurrence: None)
  Receive Date: 20110923
  Receipt Date: 20110922
  Transmission Date: 20111222
  Serious: Yes (Death)
  Sender: FDA-Public Use
  Company Number: PR-MERCK-1109USA02537

PATIENT

DRUGS (2)
  1. PRIMAXIN [Suspect]
     Indication: PNEUMONIA
     Route: 065
  2. AVELOX [Concomitant]
     Indication: PNEUMONIA
     Route: 065

REACTIONS (1)
  - CARDIO-RESPIRATORY ARREST [None]
